FAERS Safety Report 5082710-9 (Version None)
Quarter: 2006Q3

REPORT INFORMATION
  Report Type: 
  Country: None (occurrence: None)
  Receive Date: 20060817
  Receipt Date: 20060405
  Transmission Date: 20061208
  Serious: Yes (Hospitalization)
  Sender: FDA-Public Use
  Company Number: US-BRISTOL-MYERS SQUIBB COMPANY-13337555

PATIENT
  Age: 65 Year
  Sex: Female
  Weight: 69 kg

DRUGS (10)
  1. CARBOPLATIN [Suspect]
     Indication: BREAST CANCER METASTATIC
     Dosage: 299 MG DAY 1 AND DAY 8 EVERY 21 DAYS. INITIATED 04-JAN-2005. INTERRUPTED.
     Route: 042
     Dates: start: 20060217, end: 20060217
  2. IRINOTECAN HCL [Suspect]
     Indication: BREAST CANCER METASTATIC
     Dosage: GIVEN DAYS 1 AND 8 EVERY 21 DAYS. INITIATED 17-FEB-2006.INTERRUPTED.
     Route: 042
     Dates: start: 20060217, end: 20060217
  3. ZOLOFT [Concomitant]
     Indication: DEPRESSION
  4. PREVACID [Concomitant]
     Indication: GASTROOESOPHAGEAL REFLUX DISEASE
  5. COMPAZINE [Concomitant]
     Indication: NAUSEA
     Dosage: 10MG EVERY 4-6 HOURS AS NEEDED FOR NAUSEA.
     Route: 048
  6. COMPAZINE [Concomitant]
     Dosage: 25 MG EVERY SIX HOURS AS NEEDED FOR VOMITING.
     Route: 054
  7. ATIVAN [Concomitant]
     Indication: NAUSEA
     Dosage: EVERY SIX HOURS AS NEEDED FOR NAUSEA.
     Route: 048
  8. NYSTATIN [Concomitant]
     Indication: STOMATITIS
     Route: 048
  9. POTASSIUM CHLORIDE [Concomitant]
     Indication: HYPOKALAEMIA
     Route: 048
  10. LOMOTIL [Concomitant]
     Indication: DIARRHOEA
     Dosage: FOUR TIMES AS NEEDED FOR DIARRHEA.
     Route: 048

REACTIONS (5)
  - ANAEMIA [None]
  - DEHYDRATION [None]
  - HYPOKALAEMIA [None]
  - THROMBOCYTOPENIA [None]
  - URINARY TRACT INFECTION [None]
